FAERS Safety Report 4651030-6 (Version None)
Quarter: 2005Q2

REPORT INFORMATION
  Report Type: 
  Country: None (occurrence: None)
  Receive Date: 20050503
  Receipt Date: 20031121
  Transmission Date: 20051028
  Serious: Yes (Hospitalization, Disabling, Other)
  Sender: FDA-Public Use
  Company Number: US-MERCK-0311USA02527

PATIENT
  Age: 43 Year
  Sex: Female
  Weight: 125 kg

DRUGS (6)
  1. VIOXX [Suspect]
     Indication: OSTEOARTHRITIS
     Route: 048
  2. VIOXX [Suspect]
     Route: 048
     Dates: start: 20000101, end: 20031201
  3. ALLEGRA [Concomitant]
     Indication: HYPERSENSITIVITY
     Route: 065
  4. TYLENOL W/ CODEINE NO. 3 [Concomitant]
     Indication: OSTEOARTHRITIS
     Route: 065
     Dates: start: 20000101, end: 20030101
  5. ATENOLOL [Concomitant]
     Indication: HYPERTENSION
     Route: 065
  6. VASOTEC [Concomitant]
     Route: 065
     Dates: start: 19900101, end: 20020901

REACTIONS (21)
  - ABDOMINAL STRANGULATED HERNIA [None]
  - ANXIETY [None]
  - ATRIAL FIBRILLATION [None]
  - CAROTID ARTERY STENOSIS [None]
  - CEREBRAL INFARCTION [None]
  - CEREBROVASCULAR ACCIDENT [None]
  - DEPRESSION [None]
  - DIZZINESS [None]
  - EYE DISORDER [None]
  - GALLBLADDER DISORDER [None]
  - GASTROOESOPHAGEAL REFLUX DISEASE [None]
  - HEADACHE [None]
  - HYPERTENSION [None]
  - INJURY [None]
  - INTESTINAL GANGRENE [None]
  - KNEE ARTHROPLASTY [None]
  - NEURALGIA [None]
  - OEDEMA PERIPHERAL [None]
  - OSTEOARTHRITIS [None]
  - ROAD TRAFFIC ACCIDENT [None]
  - STOMACH DISCOMFORT [None]
